FAERS Safety Report 20874387 (Version 1)
Quarter: 2022Q2

REPORT INFORMATION
  Report Type: Spontaneous
  Country: US (occurrence: None)
  Receive Date: 20220525
  Receipt Date: 20220525
  Transmission Date: 20220721
  Serious: Yes (Death)
  Sender: FDA-Public Use
  Company Number: None

PATIENT
  Age: 46 Year
  Sex: Female

DRUGS (1)
  1. ZIEXTENZO [Suspect]
     Active Substance: PEGFILGRASTIM-BMEZ
     Dosage: OTHER FREQUENCY : OTHER;?
     Route: 058
     Dates: start: 202112, end: 202204

REACTIONS (1)
  - Death [None]

NARRATIVE: CASE EVENT DATE: 20220523
